FAERS Safety Report 26040337 (Version 1)
Quarter: 2025Q4

REPORT INFORMATION
  Report Type: Spontaneous
  Country: EU (occurrence: EU)
  Receive Date: 20251113
  Receipt Date: 20251113
  Transmission Date: 20260118
  Serious: Yes (Death, Other)
  Sender: CHEPLAPHARM
  Company Number: None

PATIENT
  Age: 70 Year
  Sex: Female
  Weight: 48 kg

DRUGS (15)
  1. QUETIAPINE [Suspect]
     Active Substance: QUETIAPINE
     Indication: Bipolar disorder
     Dosage: LONG COURSE; THREE TIMES DAILY?DAILY DOSE: 150 MILLIGRAM
     Route: 048
     Dates: end: 20240121
  2. CLOZAPINE [Suspect]
     Active Substance: CLOZAPINE
     Indication: Bipolar disorder
     Dosage: PEAKED AT 500 MG (STILL TAKEN IN ONE DOSE IN THE EVENING)?DAILY DOSE: 500 MILLIGRAM
     Route: 048
     Dates: start: 20190712, end: 20240121
  3. CLOZAPINE [Suspect]
     Active Substance: CLOZAPINE
     Indication: Bipolar disorder
     Dosage: DAILY DOSE: 200 MILLIGRAM
     Route: 048
     Dates: start: 202311
  4. DIAZEPAM [Suspect]
     Active Substance: DIAZEPAM
     Indication: Bipolar disorder
     Dosage: 4 TIMES DAILY, I.E. APPROXIMATELY 33 MG/DAY?DAILY DOSE: 100 DROP
     Route: 048
     Dates: end: 20240121
  5. LEVOMEPROMAZINE [Suspect]
     Active Substance: LEVOMEPROMAZINE
     Indication: Bipolar disorder
     Dosage: LONG COURSE; 3 TIMES DAILY?DAILY DOSE: 150 MILLIGRAM
     Route: 048
     Dates: end: 20240121
  6. TRIMEPRAZINE [Suspect]
     Active Substance: TRIMEPRAZINE
     Indication: Bipolar disorder
     Dosage: 20 DROPS A DAY; 20 DROPS AS NEEDED?DAILY DOSE: 20 DROP
     Route: 048
     Dates: end: 20240121
  7. LOXAPINE SUCCINATE [Suspect]
     Active Substance: LOXAPINE SUCCINATE
     Indication: Bipolar disorder
     Dosage: 2.50 G/100 MG, 50 DROPS IF NEEDED?DAILY DOSE: 50 DROP
     Route: 048
     Dates: end: 20240121
  8. TAHOR [Concomitant]
     Active Substance: ATORVASTATIN CALCIUM
     Dosage: DAILY DOSE: 10 MILLIGRAM
     Route: 048
  9. LEVOTHYROXINE [Concomitant]
     Active Substance: LEVOTHYROXINE
     Dosage: DAILY DOSE: 50 MICROGRAM
     Route: 048
  10. ACETAMINOPHEN [Concomitant]
     Active Substance: ACETAMINOPHEN
     Route: 048
  11. LACTULOSE [Concomitant]
     Active Substance: LACTULOSE
     Route: 048
  12. PROPOFOL [Concomitant]
     Active Substance: PROPOFOL
     Indication: Sedation
  13. PROPOFOL [Concomitant]
     Active Substance: PROPOFOL
     Indication: Coma
  14. SUFENTANIL [Concomitant]
     Active Substance: SUFENTANIL
     Indication: Sedation
  15. SUFENTANIL [Concomitant]
     Active Substance: SUFENTANIL
     Indication: Coma

REACTIONS (8)
  - Choking [Fatal]
  - Cardiac arrest [Fatal]
  - Dysphagia [Fatal]
  - Salivary hypersecretion [Fatal]
  - Brain death [Fatal]
  - Diabetes insipidus [Unknown]
  - Hypertension [Recovered/Resolved]
  - Hypotension [Not Recovered/Not Resolved]

NARRATIVE: CASE EVENT DATE: 20240101
